FAERS Safety Report 9892590 (Version 4)
Quarter: 2014Q2

REPORT INFORMATION
  Report Type: Spontaneous
  Country: GB (occurrence: GB)
  Receive Date: 20140212
  Receipt Date: 20140409
  Transmission Date: 20141212
  Serious: Yes (Other)
  Sender: FDA-Public Use
  Company Number: PHHY2014GB017098

PATIENT
  Age: 65 Year
  Sex: Male

DRUGS (4)
  1. STALEVO [Suspect]
     Indication: PARKINSON^S DISEASE
     Dosage: (ENTA 200MG/ LEVO200 MG/CARB 50MG)
     Route: 048
  2. STALEVO [Suspect]
     Dosage: HALVING THE LAST 3 TIMES  (200/125/31.25 MG)
     Route: 048
  3. STALEVO [Suspect]
     Dosage: 5 TIMES (200/125/31.25 MG) AND 1 TIME (200/150/37.5MG) A DAY AND 1 TIME BEFORE BED
     Route: 048
  4. AZILECT [Concomitant]
     Dosage: 1 MG, QD

REACTIONS (6)
  - Joint swelling [Unknown]
  - Feeling hot [Unknown]
  - Tremor [Unknown]
  - Lip swelling [Unknown]
  - Drug effect decreased [Unknown]
  - Wrong technique in drug usage process [Recovered/Resolved]
